FAERS Safety Report 7799647-4 (Version None)
Quarter: 2011Q4

REPORT INFORMATION
  Report Type: 
  Country: None (occurrence: None)
  Receive Date: 20111006
  Receipt Date: 20110930
  Transmission Date: 20120403
  Serious: Yes (Hospitalization, Other)
  Sender: FDA-Public Use
  Company Number: US-BRISTOL-MYERS SQUIBB COMPANY-15999147

PATIENT
  Age: 51 Year
  Sex: Male
  Weight: 81 kg

DRUGS (6)
  1. TRAMADOL HCL [Concomitant]
  2. MELOXICAM [Concomitant]
  3. IPILIMUMAB [Suspect]
     Indication: MALIGNANT MELANOMA
     Dosage: LAST ADMIN: 1AUG11.
     Route: 042
     Dates: start: 20110801
  4. IMODIUM [Concomitant]
  5. COMPAZINE [Concomitant]
  6. HYZAAR [Concomitant]

REACTIONS (3)
  - LARGE INTESTINE PERFORATION [None]
  - ENTEROCOLITIS INFECTIOUS [None]
  - COLITIS [None]
